FAERS Safety Report 9869545 (Version 1)
Quarter: 2014Q1

REPORT INFORMATION
  Report Type: Spontaneous
  Country: JP (occurrence: None)
  Receive Date: 20140131
  Receipt Date: 20140131
  Transmission Date: 20141002
  Serious: Yes (Other)
  Sender: FDA-Public Use
  Company Number: SYM-2014-15726

PATIENT
  Age: 66 Year
  Sex: Male

DRUGS (7)
  1. FLUOROURACIL (FLUOROURACIL) [Suspect]
     Indication: COLORECTAL CANCER METASTATIC
  2. IRINOTECAN (IRINOTECAN) [Suspect]
     Indication: COLORECTAL CANCER METASTATIC
  3. OXALIPLATIN (OXALIPLATIN) [Suspect]
     Indication: COLORECTAL CANCER METASTATIC
  4. LEUCOVORIN (FOLINIC ACID) [Suspect]
     Indication: COLORECTAL CANCER METASTATIC
  5. PANITUMUMAB [Suspect]
     Indication: COLORECTAL CANCER METASTATIC
  6. BEVACIZUMAB (BEVACIZUMAB) [Suspect]
     Indication: COLORECTAL CANCER METASTATIC
  7. GIMERACIL/OTERACIL POTASSIUM/TEGAFUR (GIMERACIL W/OTERACIL POTASSIUM/TEGAFUR) (OTERACIL POTASSIUM, TEGAFUR, GIMERACIL) [Concomitant]

REACTIONS (3)
  - Neurotoxicity [None]
  - Rash [None]
  - Paronychia [None]
